FAERS Safety Report 5510196-6 (Version None)
Quarter: 2007Q4

REPORT INFORMATION
  Report Type: 
  Country: None (occurrence: None)
  Receive Date: 20071108
  Receipt Date: 20071031
  Transmission Date: 20080405
  Serious: Yes (Death)
  Sender: FDA-Public Use
  Company Number: AU-ROCHE-527830

PATIENT
  Age: 77 Year
  Sex: Male
  Weight: 86 kg

DRUGS (6)
  1. CAPECITABINE [Suspect]
     Dosage: GIVEN ON DAYS 1-14 OF EVERY THREE WEEK CYCLE.
     Route: 048
     Dates: start: 20070323
  2. CAPECITABINE [Suspect]
     Dosage: GIVEN ON DAYS 1-14 OF EVERY THREE WEEK CYCLE.
     Route: 048
     Dates: start: 20071005, end: 20071019
  3. BEVACIZUMAB [Suspect]
     Dosage: GIVEN ON DAY ONE.
     Route: 042
     Dates: start: 20070323
  4. MITOMYCIN C [Suspect]
     Dosage: AS PER PROTOCOL.
     Route: 042
     Dates: start: 20070323
  5. PYRIDOXINE [Concomitant]
     Route: 048
     Dates: start: 20070706, end: 20071024
  6. LOMOTIL [Concomitant]
     Dosage: GIVEN EVERY EVENING.
     Route: 048
     Dates: start: 20070920, end: 20071024

REACTIONS (2)
  - SUBDURAL HAEMORRHAGE [None]
  - SUDDEN DEATH [None]
